FAERS Safety Report 12206773 (Version 2)
Quarter: 2016Q2

REPORT INFORMATION
  Report Type: Spontaneous
  Country: FI (occurrence: FI)
  Receive Date: 20160324
  Receipt Date: 20160414
  Transmission Date: 20160815
  Serious: Yes (Other)
  Sender: FDA-Public Use
  Company Number: FI-009507513-1603FIN010201

PATIENT
  Age: 53 Year
  Sex: Female

DRUGS (5)
  1. MELATONIN [Concomitant]
     Active Substance: MELATONIN
  2. MICONAZOLE NITRATE. [Concomitant]
     Active Substance: MICONAZOLE NITRATE
  3. OVESTIN [Suspect]
     Active Substance: ESTRIOL
     Indication: VULVOVAGINAL DRYNESS
     Dosage: UNK
     Route: 067
     Dates: start: 20160104, end: 20160204
  4. ZOPICLONE [Concomitant]
     Active Substance: ZOPICLONE
  5. ACETAMINOPHEN. [Concomitant]
     Active Substance: ACETAMINOPHEN

REACTIONS (3)
  - Rash pruritic [Not Recovered/Not Resolved]
  - Abdominal pain lower [Unknown]
  - Headache [Unknown]

NARRATIVE: CASE EVENT DATE: 201601
